FAERS Safety Report 8023733-7 (Version None)
Quarter: 2012Q1

REPORT INFORMATION
  Report Type: 
  Country: None (occurrence: None)
  Receive Date: 20120105
  Receipt Date: 20111228
  Transmission Date: 20120608
  Serious: Yes (Death)
  Sender: FDA-Public Use
  Company Number: US-CELGENEUS-163-21880-11120680

PATIENT
  Sex: Male

DRUGS (29)
  1. POTASSIUM CHLORIDE [Concomitant]
     Dosage: 20MEQ/100ML WATER
     Dates: end: 20111203
  2. HYDROMORPHONE HCL [Concomitant]
     Dosage: 2MG/ML
     Route: 041
  3. HYDROCORTISONE SODIUM [Concomitant]
     Dosage: 50 MILLIGRAM
     Route: 058
  4. ONDANSETRON [Concomitant]
     Dosage: 8 MILLIGRAM
     Route: 041
     Dates: end: 20111126
  5. EPINEPHRINE [Concomitant]
     Dosage: .3 MILLIGRAM
     Route: 058
  6. IPRATROPIUM BROMIDE [Concomitant]
     Dosage: 0.02%/0.5MG
     Route: 055
     Dates: end: 20111203
  7. ACETAMINOPHEN [Concomitant]
     Dosage: 650 MILLIGRAM
     Route: 041
  8. REVLIMID [Suspect]
     Indication: MULTIPLE MYELOMA
     Dosage: 5 MILLIGRAM
     Route: 048
     Dates: start: 20110501, end: 20110101
  9. POTASSIUM PHOSPHATES [Concomitant]
     Dosage: 30 MMOL IN D5W 250 ML
  10. HYDROMORPHONE HCL [Concomitant]
     Dosage: 0.5-1
     Route: 041
  11. HYDROMORPHONE HCL [Concomitant]
     Dosage: 1 MILLIGRAM
     Route: 041
     Dates: end: 20111203
  12. HYDROMORPHONE HCL [Concomitant]
     Dosage: 2 MILLIGRAM
     Route: 041
     Dates: end: 20111203
  13. PIPERACILLIN AND TAZOBACTAM [Concomitant]
     Dosage: 3.375 GRAM
     Dates: end: 20111203
  14. PROMETHAZINE [Concomitant]
     Dosage: 12.5-25MG
     Dates: end: 20111122
  15. SENOKOT [Concomitant]
     Dosage: 2 TABLET
     Route: 048
     Dates: end: 20111130
  16. FILGRASTIM [Concomitant]
     Dosage: 300 MICROGRAM
     Route: 058
     Dates: end: 20111202
  17. METOCLOPRAMIDE [Concomitant]
     Dosage: 10 MILLIGRAM
     Route: 041
     Dates: end: 20111124
  18. REVLIMID [Suspect]
     Dosage: 5 MILLIGRAM
     Route: 048
     Dates: start: 20111010, end: 20111118
  19. FLUCONAZOLE [Concomitant]
     Dosage: 200 GRAM
  20. ACYCLOVIR [Concomitant]
     Dosage: 285MG IN D5W 100ML
     Dates: end: 20111203
  21. ACETAMINOPHEN [Concomitant]
     Dosage: 650 MILLIGRAM
     Route: 041
     Dates: end: 20111201
  22. GUAIFENESIN-DEXTROMETHORPHAN [Concomitant]
     Dosage: 10 MILLILITER
     Route: 048
     Dates: end: 20111127
  23. TRAZODONE HCL [Concomitant]
     Dosage: 50 MILLIGRAM
     Route: 048
     Dates: end: 20111128
  24. ZOLPIDEM [Concomitant]
     Dosage: 5 MILLIGRAM
     Route: 048
  25. PANTOPRAZOLE [Concomitant]
     Dosage: 40 MICROGRAM
     Route: 041
     Dates: end: 20111203
  26. SODIUM CHLORIDE [Concomitant]
     Route: 041
     Dates: end: 20111203
  27. MAGNESIUM SULFATE [Concomitant]
     Dosage: 16MEQ/25ML
  28. LORAZEPAM [Concomitant]
     Dosage: .5 MILLIGRAM
     Route: 041
     Dates: end: 20111203
  29. DIPHENHYDRAMINE HCL [Concomitant]
     Dosage: 50 MILLIGRAM
     Route: 058

REACTIONS (1)
  - CARDIAC ARREST [None]
